FAERS Safety Report 4423924-8 (Version None)
Quarter: 2004Q3

REPORT INFORMATION
  Report Type: 
  Country: None (occurrence: None)
  Receive Date: 20040812
  Receipt Date: 20040805
  Transmission Date: 20050211
  Serious: Yes (Life-Threatening, Hospitalization, Other)
  Sender: FDA-Public Use
  Company Number: 200411806DE

PATIENT
  Age: 68 Year
  Sex: Female

DRUGS (3)
  1. TAXOTERE [Suspect]
     Indication: BREAST CANCER
     Route: 042
     Dates: start: 20040727, end: 20040727
  2. ADRIAMYCIN PFS [Suspect]
     Indication: BREAST CANCER
     Dates: start: 20040727, end: 20040727
  3. CYCLOPHOSPHAMIDE [Suspect]
     Indication: BREAST CANCER
     Dates: start: 20040727, end: 20040727

REACTIONS (3)
  - CIRCULATORY COLLAPSE [None]
  - DIARRHOEA [None]
  - LEUKOPENIA [None]
